FAERS Safety Report 8900664 (Version 2)
Quarter: 2012Q4

REPORT INFORMATION
  Report Type: 
  Country: US (occurrence: US)
  Receive Date: 20121109
  Receipt Date: 20121213
  Transmission Date: 20130627
  Serious: Yes (Hospitalization, Other)
  Sender: FDA-Public Use
  Company Number: US-CELGENEUS-163-21880-12110391

PATIENT
  Sex: Male

DRUGS (2)
  1. REVLIMID [Suspect]
     Indication: MULTIPLE MYELOMA
     Dosage: 25 Milligram
     Route: 048
     Dates: start: 20121009
  2. REVLIMID [Suspect]
     Dosage: 10-15mg
     Route: 048
     Dates: start: 2012

REACTIONS (3)
  - Adverse drug reaction [Unknown]
  - Cardiac failure congestive [Unknown]
  - Dyspnoea [Unknown]
